FAERS Safety Report 6341835-8 (Version None)
Quarter: 2009Q3

REPORT INFORMATION
  Report Type: 
  Country: None (occurrence: None)
  Receive Date: 20090902
  Receipt Date: 20090601
  Transmission Date: 20100115
  Serious: Yes (Hospitalization)
  Sender: FDA-Public Use
  Company Number: US-2009-00153

PATIENT
  Age: 6 Year
  Sex: Male

DRUGS (2)
  1. LEVETIRACETAM [Suspect]
     Dosage: 40MG/KG/DAY; 340 MG ORAL SOLUTION TWICE A DAY
     Route: 048
  2. CEFTRIAXONE [Concomitant]

REACTIONS (5)
  - AGITATION [None]
  - CONFUSIONAL STATE [None]
  - CRYING [None]
  - STEREOTYPY [None]
  - UNRESPONSIVE TO STIMULI [None]
